FAERS Safety Report 13129829 (Version 1)
Quarter: 2017Q1

REPORT INFORMATION
  Report Type: Spontaneous
  Country: US (occurrence: US)
  Receive Date: 20170118
  Receipt Date: 20170118
  Transmission Date: 20170428
  Serious: No
  Sender: FDA-Public Use
  Company Number: None

PATIENT
  Age: 3 Year
  Sex: Female
  Weight: 18.9 kg

DRUGS (1)
  1. EQUATE CHILDRENS ALLERGY RELIEF (CETIRIZINE HYDROCHLORIDE) [Suspect]
     Active Substance: CETIRIZINE HYDROCHLORIDE
     Indication: DRUG THERAPY
     Dosage: ?          QUANTITY:8 OUNCE(S);?
     Route: 048
     Dates: start: 20160131, end: 20170116

REACTIONS (4)
  - Withdrawal syndrome [None]
  - Pruritus [None]
  - Dependence [None]
  - Crying [None]

NARRATIVE: CASE EVENT DATE: 20170117
